FAERS Safety Report 6907229-9 (Version None)
Quarter: 2010Q3

REPORT INFORMATION
  Report Type: 
  Country: None (occurrence: None)
  Receive Date: 20100804
  Receipt Date: 20100728
  Transmission Date: 20110219
  Serious: Yes (Other)
  Sender: FDA-Public Use
  Company Number: US-AMGEN-QUU422591

PATIENT
  Sex: Male
  Weight: 68.6 kg

DRUGS (11)
  1. NPLATE [Suspect]
     Indication: IDIOPATHIC THROMBOCYTOPENIC PURPURA
     Route: 058
     Dates: start: 20100503, end: 20100531
  2. VIDAZA [Concomitant]
     Dates: start: 20100527, end: 20100602
  3. AMITRIPTYLINE HYDROCHLORIDE [Concomitant]
  4. OMEPRAZOLE [Concomitant]
  5. SIMVASTATIN [Concomitant]
  6. GEMFIBROZIL [Concomitant]
  7. NEURONTIN [Concomitant]
  8. DILTIAZEM [Concomitant]
  9. PRANDIN [Concomitant]
  10. ELAVIL [Concomitant]
  11. AMARYL [Concomitant]

REACTIONS (1)
  - ARTERIAL THROMBOSIS LIMB [None]
